FAERS Safety Report 8569921-2 (Version None)
Quarter: 2012Q3

REPORT INFORMATION
  Report Type: 
  Country: None (occurrence: None)
  Receive Date: 20120803
  Receipt Date: 20120330
  Transmission Date: 20120928
  Serious: No
  Sender: FDA-Public Use
  Company Number: US-ABBOTT-12P-163-0920160-00

PATIENT
  Sex: Female
  Weight: 63.56 kg

DRUGS (4)
  1. ASPIRIN [Concomitant]
     Indication: PRODUCT USED FOR UNKNOWN INDICATION
  2. CLOBEX [Concomitant]
     Indication: PSORIASIS
  3. DEMERSMOTH FX SLUCINOLONE ACETONEIDE 0.01% TOPICAL [Concomitant]
     Indication: PSORIASIS
     Route: 061
  4. NIASPAN [Suspect]
     Indication: BLOOD CHOLESTEROL
     Dosage: 500 IN AM 1000 AT HS

REACTIONS (1)
  - ALOPECIA [None]
